FAERS Safety Report 4456707-3 (Version None)
Quarter: 2004Q3

REPORT INFORMATION
  Report Type: 
  Country: None (occurrence: None)
  Receive Date: 20040917
  Receipt Date: 20040903
  Transmission Date: 20050211
  Serious: Yes (Hospitalization)
  Sender: FDA-Public Use
  Company Number: 04US000001

PATIENT
  Age: 74 Year
  Sex: Male
  Weight: 61.2 kg

DRUGS (8)
  1. LITHIUM CARBONATE [Suspect]
     Indication: BIPOLAR I DISORDER
     Dosage: SEE IMAGE, ORAL
     Route: 048
     Dates: end: 20000801
  2. LITHIUM CARBONATE [Suspect]
     Indication: BIPOLAR I DISORDER
     Dosage: SEE IMAGE, ORAL
     Route: 048
     Dates: start: 20000801, end: 20040902
  3. LITHIUM CARBONATE [Suspect]
     Indication: BIPOLAR I DISORDER
     Dosage: SEE IMAGE, ORAL
     Route: 048
     Dates: start: 19730101
  4. LIPITOR [Concomitant]
  5. LOPRESSOR [Concomitant]
  6. PROTONIX ^PHARMACIA^ (PANTOPRAZOLE) [Concomitant]
  7. ASPIRIN [Concomitant]
  8. RENAPRO [Concomitant]

REACTIONS (3)
  - DIALYSIS [None]
  - HYPERKALAEMIA [None]
  - RENAL FAILURE [None]
